FAERS Safety Report 13166022 (Version 1)
Quarter: 2017Q1

REPORT INFORMATION
  Report Type: Spontaneous
  Country: DE (occurrence: DE)
  Receive Date: 20170131
  Receipt Date: 20170131
  Transmission Date: 20170428
  Serious: Yes (Other)
  Sender: FDA-Public Use
  Company Number: DE-HETERO LABS LTD-1062554

PATIENT

DRUGS (3)
  1. ESCITALOPRAM [Suspect]
     Active Substance: ESCITALOPRAM OXALATE
     Indication: DEPRESSION
     Route: 064
     Dates: start: 20160222, end: 20160712
  2. FLUOXETINE [Concomitant]
     Active Substance: FLUOXETINE HYDROCHLORIDE
     Route: 064
  3. ELEVIT [Concomitant]
     Active Substance: FOLIC ACID\IRON\MINERALS\VITAMINS

REACTIONS (3)
  - Small for dates baby [Recovered/Resolved]
  - Temperature regulation disorder [Recovered/Resolved]
  - Foetal exposure during pregnancy [Not Recovered/Not Resolved]
